FAERS Safety Report 10018706 (Version 2)
Quarter: 2014Q1

REPORT INFORMATION
  Report Type: Report from Study
  Country: GB (occurrence: GB)
  Receive Date: 20140318
  Receipt Date: 20140318
  Transmission Date: 20141002
  Serious: Yes (Hospitalization)
  Sender: FDA-Public Use
  Company Number: GB-ROCHE-1212915

PATIENT
  Age: 58 Year
  Sex: Female
  Weight: 61.8 kg

DRUGS (14)
  1. OBINUTUZUMAB [Suspect]
     Indication: DIFFUSE LARGE B-CELL LYMPHOMA
     Dosage: DOSE TAKEN WAS 250 ML AT THE DOSE CONCENTRATION OF 4 MG/ML
     Route: 042
     Dates: start: 20130326
  2. CYCLOPHOSPHAMIDE [Suspect]
     Indication: DIFFUSE LARGE B-CELL LYMPHOMA
     Dosage: LAST DOSE: 1300 MG
     Route: 042
     Dates: start: 20130326
  3. DOXORUBICIN [Suspect]
     Indication: DIFFUSE LARGE B-CELL LYMPHOMA
     Dosage: LAST DOSE: 85 MG
     Route: 042
     Dates: start: 20130326
  4. VINCRISTINE [Suspect]
     Indication: DIFFUSE LARGE B-CELL LYMPHOMA
     Dosage: LAST DOSE: 2 MG
     Route: 042
     Dates: start: 20130326
  5. PREDNISONE [Suspect]
     Indication: DIFFUSE LARGE B-CELL LYMPHOMA
     Dosage: LAST DOSE : 100 MG
     Route: 048
     Dates: start: 20130326
  6. DOMPERIDONE [Concomitant]
     Indication: NAUSEA
     Route: 065
     Dates: start: 20130228
  7. CO-DANTHRAMER [Concomitant]
     Indication: CONSTIPATION
     Route: 065
     Dates: start: 20130228
  8. MORPHINE SULFATE [Concomitant]
     Indication: BACK PAIN
     Route: 065
     Dates: start: 20130228
  9. DEXAMETHASONE [Concomitant]
     Indication: PROPHYLAXIS
     Route: 065
     Dates: start: 20130326, end: 20130820
  10. ONDANSETRON [Concomitant]
     Indication: NAUSEA
     Route: 065
     Dates: start: 20130326, end: 20130820
  11. PARACETAMOL [Concomitant]
     Indication: PYREXIA
     Route: 065
     Dates: start: 20130326
  12. CHLORPHENAMINE [Concomitant]
     Indication: PRURITUS
     Route: 065
     Dates: start: 20130326, end: 20130820
  13. DALTEPARIN [Concomitant]
     Route: 065
     Dates: start: 20130410, end: 20130412
  14. OMEPRAZOLE [Concomitant]
     Route: 065
     Dates: start: 20130326

REACTIONS (1)
  - Neutropenic sepsis [Recovered/Resolved]
